FAERS Safety Report 14964646 (Version 2)
Quarter: 2018Q2

REPORT INFORMATION
  Report Type: Spontaneous
  Country: US (occurrence: US)
  Receive Date: 20180601
  Receipt Date: 20180604
  Transmission Date: 20180711
  Serious: No
  Sender: FDA-Public Use
  Company Number: US-PFIZER INC-2018222528

PATIENT
  Age: 68 Year
  Sex: Female
  Weight: 56.24 kg

DRUGS (1)
  1. EUCRISA [Suspect]
     Active Substance: CRISABOROLE
     Indication: ECZEMA
     Dosage: UNK, AS NEEDED (APPLY ON EYE LIDS TWICE A DAY)
     Route: 061
     Dates: start: 201703

REACTIONS (1)
  - Ocular discomfort [Not Recovered/Not Resolved]

NARRATIVE: CASE EVENT DATE: 2018
